FAERS Safety Report 7580802-3 (Version None)
Quarter: 2011Q2

REPORT INFORMATION
  Report Type: 
  Country: None (occurrence: None)
  Receive Date: 20110629
  Receipt Date: 20110614
  Transmission Date: 20111010
  Serious: Yes (Hospitalization)
  Sender: FDA-Public Use
  Company Number: US-WATSON-2011-08593

PATIENT
  Age: 55 Year
  Sex: Female
  Weight: 61 kg

DRUGS (3)
  1. ZOFRAN [Concomitant]
     Indication: NAUSEA
     Dosage: 4-8MG EVERY 6-8 HRS PRN
     Route: 048
     Dates: start: 20110406, end: 20110425
  2. NORCO 10/325 (WATSON LABORATORIES) [Suspect]
     Indication: PAIN
     Dosage: 10/325MG EVERY 4 HOURS PRN
     Route: 048
     Dates: start: 20110120, end: 20110425
  3. UNKNOWN STUDY DRUG [Suspect]
     Indication: LUNG ADENOCARCINOMA
     Dosage: 200 MG, BID
     Route: 048
     Dates: start: 20110223, end: 20110424

REACTIONS (3)
  - ABDOMINAL PAIN [None]
  - VOMITING [None]
  - PYREXIA [None]
